FAERS Safety Report 8812649 (Version 1)
Quarter: 2012Q4

REPORT INFORMATION
  Report Type: 
  Country: HR (occurrence: HR)
  Receive Date: 20120927
  Receipt Date: 20120927
  Transmission Date: 20130627
  Serious: Yes (Other)
  Sender: FDA-Public Use
  Company Number: PHHY2012HR082854

PATIENT
  Age: 81 Year
  Sex: Female

DRUGS (7)
  1. AMOXICILLIN [Suspect]
     Indication: CYSTITIS
     Route: 048
  2. OLICARD [Concomitant]
     Dosage: 40 mg, daily
     Route: 048
  3. CARVEDILOL [Concomitant]
     Dosage: 3.125 mg per day
     Route: 048
  4. FURSEMID [Concomitant]
     Dosage: 40 mg per day
     Route: 048
  5. LACIPIL [Concomitant]
     Dosage: 4 mg per day
     Route: 048
  6. LIPEX [Concomitant]
     Dosage: 20 mg, per day
     Route: 048
  7. ALOPURINOL [Concomitant]
     Dosage: 100 mg, per day
     Route: 048

REACTIONS (9)
  - Burning sensation [Recovered/Resolved]
  - Loss of consciousness [Recovered/Resolved]
  - Faecal incontinence [Recovered/Resolved]
  - Asthenia [Recovered/Resolved]
  - Chills [Recovered/Resolved]
  - Conjunctival hyperaemia [Recovered/Resolved]
  - Electrocardiogram abnormal [Recovered/Resolved]
  - Pruritus [Recovered/Resolved]
  - Generalised erythema [Recovered/Resolved]
